FAERS Safety Report 9403646 (Version 2)
Quarter: 2013Q3

REPORT INFORMATION
  Report Type: Report from Study
  Country: AR (occurrence: AR)
  Receive Date: 20130717
  Receipt Date: 20130826
  Transmission Date: 20140515
  Serious: Yes (Other)
  Sender: FDA-Public Use
  Company Number: AR-ROCHE-1247544

PATIENT
  Sex: Male

DRUGS (3)
  1. LUCENTIS [Suspect]
     Indication: DIABETIC RETINOPATHY
     Route: 050
     Dates: start: 2011, end: 2011
  2. AMLODIPINE [Suspect]
     Indication: HYPERTENSION
     Dosage: 10 MG
     Route: 048
  3. VALSARTAN [Suspect]
     Indication: HYPERTENSION
     Dosage: 160 MG
     Route: 048

REACTIONS (6)
  - Arrhythmia [Not Recovered/Not Resolved]
  - Blood glucose increased [Recovering/Resolving]
  - Blood glucose abnormal [Not Recovered/Not Resolved]
  - Tooth infection [Unknown]
  - Macular fibrosis [Unknown]
  - Glycosylated haemoglobin increased [Recovering/Resolving]
